FAERS Safety Report 6740211-3 (Version None)
Quarter: 2010Q2

REPORT INFORMATION
  Report Type: 
  Country: None (occurrence: None)
  Receive Date: 20100525
  Receipt Date: 20100519
  Transmission Date: 20101027
  Serious: Yes (Death)
  Sender: FDA-Public Use
  Company Number: B0586642A

PATIENT
  Sex: Female
  Weight: 48 kg

DRUGS (16)
  1. TYKERB [Suspect]
     Indication: BREAST CANCER
     Dosage: 1250MG PER DAY
     Route: 048
     Dates: start: 20090716
  2. XELODA [Concomitant]
     Route: 048
     Dates: start: 20090716
  3. PYDOXAL [Concomitant]
     Indication: PROPHYLAXIS
     Route: 048
     Dates: start: 20090716
  4. GASTER D [Concomitant]
     Route: 048
     Dates: start: 20090716
  5. VOLTAREN [Concomitant]
     Indication: PAIN IN EXTREMITY
     Route: 048
     Dates: start: 20090716, end: 20091009
  6. NOVAMINE [Concomitant]
     Indication: NAUSEA
     Route: 048
     Dates: start: 20090806, end: 20090812
  7. RIVOTRIL [Concomitant]
     Indication: PAIN IN EXTREMITY
     Route: 048
     Dates: start: 20090716
  8. AMITRIPTYLINE HCL [Concomitant]
     Indication: PAIN IN EXTREMITY
     Route: 048
     Dates: start: 20090716
  9. GABAPENTIN [Concomitant]
     Indication: PAIN IN EXTREMITY
     Route: 048
     Dates: start: 20090716
  10. PARIET [Concomitant]
     Indication: DUODENAL ULCER
     Route: 048
     Dates: start: 20091112, end: 20091125
  11. OXYCONTIN [Concomitant]
     Indication: PAIN IN EXTREMITY
     Route: 048
     Dates: start: 20090914
  12. LOPEMIN [Concomitant]
     Route: 048
     Dates: start: 20090806, end: 20090812
  13. CHINESE MEDICINE [Concomitant]
     Indication: NAUSEA
     Route: 048
     Dates: start: 20090806, end: 20090812
  14. NAUZELIN [Concomitant]
     Indication: NAUSEA
     Route: 048
     Dates: start: 20090928, end: 20091009
  15. LOXONIN [Concomitant]
     Indication: PAIN IN EXTREMITY
     Route: 048
     Dates: start: 20090928, end: 20091009
  16. SELBEX [Concomitant]
     Route: 048
     Dates: start: 20090928, end: 20091009

REACTIONS (4)
  - DEATH [None]
  - DIARRHOEA [None]
  - DRUG ERUPTION [None]
  - NAUSEA [None]
